FAERS Safety Report 11221072 (Version 2)
Quarter: 2015Q2

REPORT INFORMATION
  Report Type: Spontaneous
  Country: US (occurrence: US)
  Receive Date: 20150626
  Receipt Date: 20150630
  Transmission Date: 20150821
  Serious: No
  Sender: FDA-Public Use
  Company Number: US-AMGEN-USASP2015061520

PATIENT
  Age: 52 Year
  Sex: Female

DRUGS (1)
  1. ENBREL [Suspect]
     Active Substance: ETANERCEPT
     Indication: RHEUMATOID ARTHRITIS
     Dosage: 50 MG, QWK
     Route: 058
     Dates: start: 20150522

REACTIONS (8)
  - Injection site swelling [Not Recovered/Not Resolved]
  - Injection site warmth [Unknown]
  - Injection site pain [Unknown]
  - Injection site rash [Unknown]
  - Injection site erythema [Not Recovered/Not Resolved]
  - Injection site induration [Not Recovered/Not Resolved]
  - Injection site reaction [Unknown]
  - Injection site inflammation [Unknown]

NARRATIVE: CASE EVENT DATE: 201506
